FAERS Safety Report 20910329 (Version 1)
Quarter: 2022Q2

REPORT INFORMATION
  Report Type: Spontaneous
  Country: DE (occurrence: DE)
  Receive Date: 20220603
  Receipt Date: 20220603
  Transmission Date: 20220721
  Serious: Yes (Hospitalization, Other)
  Sender: FDA-Public Use
  Company Number: DE-AstraZeneca-2022A186361

PATIENT
  Sex: Male

DRUGS (12)
  1. BUDESONIDE [Suspect]
     Active Substance: BUDESONIDE
     Indication: Product used for unknown indication
     Dosage: 100 MICROGRAM, QD
     Route: 055
  2. BUDESONIDE [Suspect]
     Active Substance: BUDESONIDE
     Dosage: 200 MICROGRAM, QD
     Route: 055
  3. FLUTICASONE PROPIONATE\SALMETEROL XINAFOATE [Concomitant]
     Active Substance: FLUTICASONE PROPIONATE\SALMETEROL XINAFOATE
     Dosage: UNK, (50/250 ?G, TWO TIMES A DAY)
  4. FLUTICASONE [Concomitant]
     Active Substance: FLUTICASONE
     Dosage: UNK
  5. ALBUTEROL [Concomitant]
     Active Substance: ALBUTEROL
     Dosage: UNK, (4 X DAILY BY INHALATION)
  6. FORMOTEROL [Concomitant]
     Active Substance: FORMOTEROL
     Dosage: 12 MICROGRAM, BID Q12H
  7. PREDNISOLONE [Concomitant]
     Active Substance: PREDNISOLONE
     Dosage: UNK, (100 MG INITIALLY INTRAVENOUSLY, THEN 50 MG ORALLY)
  8. ALBUTEROL\IPRATROPIUM [Concomitant]
     Active Substance: ALBUTEROL\IPRATROPIUM
     Dosage: UNK
  9. TIOTROPIUM [Concomitant]
     Active Substance: TIOTROPIUM
     Dosage: 18 MICROGRAM, QD
  10. FENOTEROL [Concomitant]
     Active Substance: FENOTEROL
     Dosage: UNK
  11. TIOTROPIUM [Concomitant]
     Active Substance: TIOTROPIUM
     Dosage: UNK, Q12H
  12. FLUTICASONE;UMECLIDINIUM;VILANTEROL [Concomitant]
     Dosage: UNK, QD 92/22/55 ?G, DAILY

REACTIONS (1)
  - Dyspnoea [Unknown]
